FAERS Safety Report 5876275-9 (Version None)
Quarter: 2008Q3

REPORT INFORMATION
  Report Type: 
  Country: None (occurrence: None)
  Receive Date: 20080910
  Receipt Date: 20080826
  Transmission Date: 20090109
  Serious: Yes (Hospitalization)
  Sender: FDA-Public Use
  Company Number: JP-EISAI MEDICAL RESEARCH-E0800-00011-SPO-JP

PATIENT
  Sex: Female

DRUGS (14)
  1. SALAGEN [Suspect]
     Indication: SJOGREN'S SYNDROME
     Route: 048
     Dates: start: 20080726, end: 20080804
  2. ZITHROMAX [Concomitant]
     Indication: BRONCHOPNEUMONIA
     Route: 048
     Dates: start: 20080729, end: 20080731
  3. CLARITHROMYCIN [Concomitant]
     Indication: BRONCHOPNEUMONIA
     Route: 048
     Dates: start: 20080802, end: 20080804
  4. RABEPRAZOLE SODIUM [Concomitant]
     Indication: REFLUX OESOPHAGITIS
     Route: 048
     Dates: start: 20080130
  5. THYRADIN [Concomitant]
     Indication: AUTOIMMUNE THYROIDITIS
     Route: 048
  6. AMLODIN OD [Concomitant]
     Indication: HYPERTENSION
     Route: 048
     Dates: start: 20030930
  7. MARZULENE S [Concomitant]
     Indication: GASTRITIS
     Route: 048
     Dates: start: 20070216
  8. FERROMIA [Concomitant]
     Indication: IRON DEFICIENCY ANAEMIA
     Route: 048
     Dates: start: 20080530
  9. PREDNISOLONE [Concomitant]
     Indication: SYSTEMIC LUPUS ERYTHEMATOSUS
     Route: 048
     Dates: start: 19940101, end: 20080802
  10. MAGLAX [Concomitant]
     Indication: GASTRITIS
     Route: 048
     Dates: start: 20080125
  11. DASEN [Concomitant]
     Indication: BRONCHOPNEUMONIA
     Route: 048
     Dates: start: 20080802, end: 20080804
  12. ASTOMIN [Concomitant]
     Indication: BRONCHOPNEUMONIA
     Route: 048
     Dates: start: 20080802, end: 20080804
  13. ACETAMINOPHEN [Concomitant]
     Indication: BRONCHOPNEUMONIA
     Route: 048
     Dates: start: 20080802, end: 20080804
  14. CARBENIN [Concomitant]
     Indication: BRONCHOPNEUMONIA
     Dosage: UNKNOWN
     Route: 041
     Dates: start: 20080802, end: 20080802

REACTIONS (1)
  - INTERSTITIAL LUNG DISEASE [None]
